FAERS Safety Report 5652879-3 (Version None)
Quarter: 2008Q1

REPORT INFORMATION
  Report Type: 
  Country: None (occurrence: None)
  Receive Date: 20080306
  Receipt Date: 20080227
  Transmission Date: 20080703
  Serious: Yes (Death, Life-Threatening)
  Sender: FDA-Public Use
  Company Number: NO-JNJFOC-20070306193

PATIENT
  Sex: Female

DRUGS (3)
  1. REMICADE [Suspect]
     Indication: RHEUMATOID ARTHRITIS
     Dosage: EVERY 6TH-7TH WEEK
     Route: 042
  2. METHOTREXATE [Concomitant]
     Indication: RHEUMATOID ARTHRITIS
     Route: 051
     Dates: start: 20040901, end: 20060201
  3. MAREVAN [Concomitant]
     Indication: PATHOLOGICAL FRACTURE

REACTIONS (2)
  - COLON CANCER [None]
  - COLON CANCER METASTATIC [None]
